FAERS Safety Report 8102924-0 (Version None)
Quarter: 2012Q1

REPORT INFORMATION
  Report Type: 
  Country: None (occurrence: None)
  Receive Date: 20120201
  Receipt Date: 20120124
  Transmission Date: 20120608
  Serious: Yes (Other)
  Sender: FDA-Public Use
  Company Number: JP-COVIDIEN/TYCO HEALTHCARE/MALLINCKRODT-T201200504

PATIENT
  Age: 14 Year
  Sex: Female

DRUGS (2)
  1. OPTIRAY 160 [Suspect]
     Indication: COMPUTERISED TOMOGRAM
     Dosage: 83 ML, SINGLE
     Route: 042
     Dates: start: 20120114, end: 20120114
  2. CHLORPHENIRAMINE MALEATE [Suspect]
     Indication: ANAPHYLACTOID REACTION
     Dosage: UNK
     Route: 042
     Dates: start: 20120114, end: 20120114

REACTIONS (9)
  - RASH [None]
  - ERYTHEMA [None]
  - URTICARIA [None]
  - OROPHARYNGEAL DISCOMFORT [None]
  - BRADYCARDIA [None]
  - BLOOD PRESSURE DECREASED [None]
  - LIP PAIN [None]
  - PRURITUS [None]
  - FACE OEDEMA [None]
